FAERS Safety Report 12542593 (Version 1)
Quarter: 2016Q3

REPORT INFORMATION
  Report Type: Spontaneous
  Country: US (occurrence: US)
  Receive Date: 20160709
  Receipt Date: 20160709
  Transmission Date: 20161109
  Serious: No
  Sender: FDA-Public Use
  Company Number: US-JNJFOC-20160518874

PATIENT
  Age: 35 Year
  Sex: Female
  Weight: 48.99 kg

DRUGS (5)
  1. INVEGA SUSTENNA [Suspect]
     Active Substance: PALIPERIDONE PALMITATE
     Indication: AUTISM SPECTRUM DISORDER
     Route: 030
     Dates: start: 20151103, end: 20151103
  2. INVEGA SUSTENNA [Suspect]
     Active Substance: PALIPERIDONE PALMITATE
     Indication: ANXIETY DISORDER
     Route: 030
     Dates: start: 20151103, end: 20151103
  3. INVEGA SUSTENNA [Suspect]
     Active Substance: PALIPERIDONE PALMITATE
     Indication: OBSESSIVE-COMPULSIVE DISORDER
     Route: 030
     Dates: start: 20151103, end: 20151103
  4. ZYPREXA [Concomitant]
     Active Substance: OLANZAPINE
     Indication: ANXIETY
     Route: 065
     Dates: start: 20151006, end: 201511
  5. XANAX [Concomitant]
     Active Substance: ALPRAZOLAM
     Indication: ANXIETY
     Route: 065
     Dates: start: 20150114, end: 201512

REACTIONS (9)
  - Musculoskeletal stiffness [Recovered/Resolved]
  - Dyskinesia [Recovered/Resolved]
  - Refusal of treatment by patient [Unknown]
  - Muscular weakness [Recovered/Resolved]
  - Product use issue [Unknown]
  - Myalgia [Recovered/Resolved]
  - Restlessness [Recovered/Resolved]
  - Off label use [Unknown]
  - Sensory loss [Recovered/Resolved]

NARRATIVE: CASE EVENT DATE: 201511
